FAERS Safety Report 23034462 (Version 2)
Quarter: 2023Q4

REPORT INFORMATION
  Report Type: Spontaneous
  Country: US (occurrence: US)
  Receive Date: 20231005
  Receipt Date: 20231124
  Transmission Date: 20240110
  Serious: Yes (Death, Hospitalization, Other)
  Sender: FDA-Public Use
  Company Number: US-002147023-NVSC2023US214291

PATIENT
  Age: 16 Year
  Sex: Male
  Weight: 87.3 kg

DRUGS (7)
  1. KYMRIAH [Suspect]
     Active Substance: TISAGENLECLEUCEL
     Indication: B-cell type acute leukaemia
     Dosage: UNK, ONCE/SINGLE
     Route: 042
     Dates: start: 20230828, end: 20230828
  2. ALLOPURINOL [Concomitant]
     Active Substance: ALLOPURINOL
     Indication: Tumour lysis syndrome
     Dosage: 300 MG, TID
     Route: 048
  3. ACYCLOVIR [Concomitant]
     Active Substance: ACYCLOVIR
     Indication: Prophylaxis
     Dosage: 800 MG, BID
     Route: 048
  4. DECADRON [Concomitant]
     Active Substance: DEXAMETHASONE
     Indication: Chemotherapy
     Dosage: 400 MG, QID
     Route: 048
  5. KEPPRA [Concomitant]
     Active Substance: LEVETIRACETAM
     Indication: Epilepsy
     Dosage: 500 MG, BID
     Route: 048
  6. HYDROXYUREA [Concomitant]
     Active Substance: HYDROXYUREA
     Indication: Chemotherapy
     Dosage: 1000 MG, TID
     Route: 048
  7. ZOFRAN [Concomitant]
     Active Substance: ONDANSETRON HYDROCHLORIDE
     Indication: Nausea
     Dosage: 4 MG, PRN
     Route: 048

REACTIONS (8)
  - Leukaemia recurrent [Fatal]
  - Pyrexia [Unknown]
  - Klebsiella bacteraemia [Recovered/Resolved]
  - Pancytopenia [Unknown]
  - Blast cell count increased [Unknown]
  - Blast cell count decreased [Not Recovered/Not Resolved]
  - White blood cell count increased [Unknown]
  - Drug ineffective [Unknown]

NARRATIVE: CASE EVENT DATE: 20230920
